FAERS Safety Report 4587070-5 (Version None)
Quarter: 2005Q1

REPORT INFORMATION
  Report Type: 
  Country: None (occurrence: None)
  Receive Date: 20050214
  Receipt Date: 20050207
  Transmission Date: 20050727
  Serious: Yes (Other)
  Sender: FDA-Public Use
  Company Number: 2005-01-0748

PATIENT
  Sex: Male
  Weight: 55 kg

DRUGS (3)
  1. REBETOL [Suspect]
     Indication: HEPATITIS C
     Dosage: 600 MG ORAL
     Route: 048
     Dates: start: 20041213, end: 20050101
  2. INTRON A [Suspect]
     Indication: HEPATITIS C
     Dosage: 10 MIU INTRAMUSCULAR
     Route: 030
     Dates: start: 20041213, end: 20050101
  3. PEG-INTRON [Suspect]
     Indication: HEPATITIS C
     Dosage: 100 MCG QW SUBCUTANEOUS
     Route: 058
     Dates: start: 20041227, end: 20050103

REACTIONS (5)
  - ACIDOSIS [None]
  - COUGH [None]
  - NEPHRITIS INTERSTITIAL [None]
  - PHARYNGOLARYNGEAL PAIN [None]
  - RHINORRHOEA [None]
